FAERS Safety Report 17811450 (Version 5)
Quarter: 2020Q4

REPORT INFORMATION
  Report Type: Report from Study
  Country: TW (occurrence: TW)
  Receive Date: 20200521
  Receipt Date: 20201102
  Transmission Date: 20210113
  Serious: Yes (Death, Life-Threatening, Hospitalization)
  Sender: FDA-Public Use
  Company Number: TW-BAYER-2019-232911

PATIENT
  Age: 58 Year
  Sex: Male
  Weight: 68 kg

DRUGS (128)
  1. STIVARGA [Suspect]
     Active Substance: REGORAFENIB
     Indication: HEPATOCELLULAR CARCINOMA
     Dosage: 80 MG, QD
     Dates: start: 20200410, end: 20200515
  2. STIVARGA [Suspect]
     Active Substance: REGORAFENIB
     Indication: HEPATOCELLULAR CARCINOMA
     Dosage: 80 MG, QD
     Dates: start: 20200628, end: 20200721
  3. CARDOLOL [Concomitant]
     Active Substance: PROPRANOLOL HYDROCHLORIDE
     Dosage: 40 MG, BID
     Dates: start: 20200623, end: 20200624
  4. LASIX [Concomitant]
     Active Substance: FUROSEMIDE
     Dosage: 20 MG, ONCE
     Dates: start: 20200620, end: 20200621
  5. BOWKLEAN [Concomitant]
     Dosage: 32.4 G, ONCE
     Dates: start: 20200622, end: 20200623
  6. ROLIKAN [Concomitant]
     Dosage: 28 %, ONCE
     Dates: start: 20200721, end: 20200721
  7. MIDAZOLAM. [Concomitant]
     Active Substance: MIDAZOLAM
     Dosage: 5 MG, ONCE
     Dates: start: 20200721
  8. MEROPENEM. [Concomitant]
     Active Substance: MEROPENEM
     Indication: PYREXIA
     Dosage: 0.5 MG, QD
     Dates: start: 20200804, end: 20200804
  9. MEROPENEM. [Concomitant]
     Active Substance: MEROPENEM
     Indication: PYREXIA
     Dosage: 500 MG, QD
     Dates: start: 20200804, end: 20200805
  10. POT PHOSPHATE [Concomitant]
     Dosage: 20 ML, QD
     Dates: start: 20200724
  11. POT PHOSPHATE [Concomitant]
     Dosage: 20 ML, QD
     Dates: start: 20200727
  12. CHLORPHENIRAMINE [CHLORPHENAMINE] [Concomitant]
     Active Substance: CHLORPHENIRAMINE
     Dosage: 5 MG, ONCE
     Dates: start: 20200731, end: 20200801
  13. CHLORPHENIRAMINE [CHLORPHENAMINE] [Concomitant]
     Active Substance: CHLORPHENIRAMINE
     Dosage: 5 MG, ONCE
     Dates: start: 20200801, end: 20200802
  14. INSULIN DETEMIR [Concomitant]
     Active Substance: INSULIN DETEMIR
     Indication: TYPE 2 DIABETES MELLITUS
     Dosage: 300 IU, QD
     Dates: start: 20200804, end: 20200811
  15. ACETYLCYSTEINE. [Concomitant]
     Active Substance: ACETYLCYSTEINE
     Indication: PRODUCTIVE COUGH
     Dosage: 600 MG, BID
     Dates: start: 20200806, end: 20200819
  16. NOREPINEPHRINE. [Concomitant]
     Active Substance: NOREPINEPHRINE
     Indication: HYPOTENSION
     Dosage: 8 MG, ONCE
     Dates: start: 20200806, end: 20200807
  17. NOREPINEPHRINE. [Concomitant]
     Active Substance: NOREPINEPHRINE
     Indication: HYPOTENSION
     Dosage: 8 MG, PRN
     Dates: start: 20200806, end: 20200806
  18. KALIMATE [Concomitant]
     Active Substance: CALCIUM POLYSTYRENE SULFONATE
     Indication: HYPERKALAEMIA
     Dosage: 5 G, TID
     Dates: start: 20200810, end: 20200813
  19. MORPHINE HCL [Concomitant]
     Active Substance: MORPHINE HYDROCHLORIDE
     Dosage: 40 MG, ONCE
     Dates: start: 20191220, end: 20191221
  20. ACETAMINOPHEN. [Concomitant]
     Active Substance: ACETAMINOPHEN
     Dosage: 500 MG, QID
     Dates: start: 20191220, end: 20191224
  21. SENNA LEAF [Concomitant]
     Active Substance: SENNA LEAF
     Dosage: 15 MG, QD
     Dates: start: 20191220, end: 20191224
  22. LIPITOR [Concomitant]
     Active Substance: ATORVASTATIN CALCIUM
     Dosage: 20 MG, QD
     Dates: start: 20200406, end: 20200410
  23. TEICOPLANIN [Concomitant]
     Active Substance: TEICOPLANIN
     Indication: PYREXIA
     Dosage: 600 MG, ONCE
     Dates: start: 20200722
  24. VITAGEN [GLUCOSE] [Concomitant]
     Dosage: 200 %, ONCE
     Dates: start: 20200721, end: 20200721
  25. ASCORBIC ACID. [Concomitant]
     Active Substance: ASCORBIC ACID
     Dosage: 500 MG, QID
     Dates: start: 20200722
  26. POTASSIUM CHLORIDE. [Concomitant]
     Active Substance: POTASSIUM CHLORIDE
     Dosage: 90 %, ONCE
     Dates: start: 20200724
  27. POTASSIUM CHLORIDE. [Concomitant]
     Active Substance: POTASSIUM CHLORIDE
     Dosage: 15 %, QD
     Dates: start: 20200729
  28. FRESOFOL [Concomitant]
     Dosage: 2 %, QID
     Dates: start: 20200731, end: 20200801
  29. FRESOFOL [Concomitant]
     Dosage: 2 %, ONCE
     Dates: start: 20200731, end: 20200801
  30. COLIMYCIN [COLISTIN SULFATE] [Concomitant]
     Dosage: 233.8 MG, BID
     Dates: start: 20200726, end: 20200727
  31. CHLORPHENIRAMINE [CHLORPHENAMINE] [Concomitant]
     Active Substance: CHLORPHENIRAMINE
     Dosage: 5 MG, ONCE
     Dates: start: 20200802, end: 20200803
  32. DEXMEDETOMIDINE. [Concomitant]
     Active Substance: DEXMEDETOMIDINE
     Indication: HYPOTENSION
     Dosage: 200 U, ONCE
     Dates: start: 20200802, end: 20200803
  33. ACETYLCYSTEINE. [Concomitant]
     Active Substance: ACETYLCYSTEINE
     Indication: PRODUCTIVE COUGH
     Dosage: 600 MG, BID
     Dates: start: 20200805, end: 20200806
  34. ACETYLCYSTEINE. [Concomitant]
     Active Substance: ACETYLCYSTEINE
     Indication: PRODUCTIVE COUGH
     Dosage: 600 MG, QID
     Dates: start: 20200806, end: 20200806
  35. SILVER SULFADIAZINE. [Concomitant]
     Active Substance: SILVER SULFADIAZINE
     Dosage: 1 %, BID
     Dates: start: 20200810
  36. STIVARGA [Suspect]
     Active Substance: REGORAFENIB
     Indication: HEPATOCELLULAR CARCINOMA
     Dosage: 80 MG, QD
     Dates: start: 20191001, end: 20191113
  37. STIVARGA [Suspect]
     Active Substance: REGORAFENIB
     Indication: HEPATOCELLULAR CARCINOMA
     Dosage: 80 MG, QD
     Dates: start: 20191126, end: 20200406
  38. MORPHINE HCL [Concomitant]
     Active Substance: MORPHINE HYDROCHLORIDE
     Dosage: 10 MG, ONCE
     Dates: start: 20200723, end: 20200724
  39. MORPHINE HCL [Concomitant]
     Active Substance: MORPHINE HYDROCHLORIDE
     Dosage: 20 MG, ONCE
     Dates: start: 20200821, end: 20200822
  40. CARDOLOL [Concomitant]
     Active Substance: PROPRANOLOL HYDROCHLORIDE
     Dosage: 10 MG, BID
     Dates: start: 20200408, end: 20200408
  41. MEROPENEM. [Concomitant]
     Active Substance: MEROPENEM
     Indication: PYREXIA
     Dosage: 500 MG, QD
     Dates: start: 20200808, end: 20200811
  42. LACTULOSE. [Concomitant]
     Active Substance: LACTULOSE
     Dosage: 600 MG, ONCE
     Dates: start: 20200721, end: 20200721
  43. POT PHOSPHATE [Concomitant]
     Dosage: 20 ML, QD
     Dates: start: 20200803, end: 20200804
  44. POTASSIUM CHLORIDE. [Concomitant]
     Active Substance: POTASSIUM CHLORIDE
     Dosage: 90 %, QD
     Dates: start: 20200724
  45. POTASSIUM CHLORIDE. [Concomitant]
     Active Substance: POTASSIUM CHLORIDE
     Dosage: 90 %, QD
     Dates: start: 20200803, end: 20200804
  46. CIPROFLOXACIN. [Concomitant]
     Active Substance: CIPROFLOXACIN
     Dosage: 400 MG, BID
     Dates: start: 20200726
  47. VORICONAZOLE. [Concomitant]
     Active Substance: VORICONAZOLE
     Dosage: 200 MG, BID
     Dates: start: 20200728
  48. NOREPINEPHRINE. [Concomitant]
     Active Substance: NOREPINEPHRINE
     Indication: HYPOTENSION
     Dosage: 8 MG, PRN
     Dates: start: 20200807, end: 20200809
  49. TRAMADOL HCL [Concomitant]
     Active Substance: TRAMADOL HYDROCHLORIDE
     Dosage: 100 MG, BID
     Dates: start: 20200820, end: 20200821
  50. ACETAMINOPHEN. [Concomitant]
     Active Substance: ACETAMINOPHEN
     Dosage: 500 MG, PRN
     Dates: start: 20200728
  51. SENNA LEAF [Concomitant]
     Active Substance: SENNA LEAF
     Dosage: 15 MG, QD
     Dates: start: 20200121, end: 20200217
  52. TEICOPLANIN [Concomitant]
     Active Substance: TEICOPLANIN
     Indication: PYREXIA
     Dosage: 600 MG, ONCE
     Dates: start: 20200721, end: 20200721
  53. LEVOPHED [Concomitant]
     Active Substance: NOREPINEPHRINE BITARTRATE
     Dosage: 8 MG, ONCE
     Dates: start: 20200721, end: 20200721
  54. MIDAZOLAM. [Concomitant]
     Active Substance: MIDAZOLAM
     Dosage: 5 MG, ONCE
     Dates: start: 20200722
  55. FRESOFOL [Concomitant]
     Dosage: 2 %, QID
     Dates: start: 20200726, end: 20200727
  56. FRESOFOL [Concomitant]
     Dosage: 2 %, QID
     Dates: start: 20200728
  57. ACETYLCYSTEINE. [Concomitant]
     Active Substance: ACETYLCYSTEINE
     Indication: PRODUCTIVE COUGH
     Dosage: 600 MG, BID
     Dates: start: 20200820, end: 20200822
  58. NOREPINEPHRINE. [Concomitant]
     Active Substance: NOREPINEPHRINE
     Indication: HYPOTENSION
     Dosage: 8 MG, Q8HR
     Dates: start: 20200812
  59. NOREPINEPHRINE. [Concomitant]
     Active Substance: NOREPINEPHRINE
     Indication: HYPOTENSION
     Dosage: 8 MG, Q8HR
     Dates: start: 20200820, end: 20200822
  60. CEFAZOLIN [Concomitant]
     Active Substance: CEFAZOLIN
     Dosage: 1000 MG, PRN
     Dates: start: 20191219, end: 20191220
  61. ACETAMINOPHEN. [Concomitant]
     Active Substance: ACETAMINOPHEN
     Dosage: 500 MG, PRN
     Dates: start: 20200811
  62. INDERAL [Concomitant]
     Active Substance: PROPRANOLOL HYDROCHLORIDE
     Dosage: 40 MG, BID
     Dates: start: 20200428, end: 20200511
  63. TAZOCIN [Concomitant]
     Active Substance: PIPERACILLIN SODIUM\TAZOBACTAM SODIUM
     Indication: PYREXIA
     Dosage: 2.25 G, ONCE
     Dates: start: 20200721, end: 20200721
  64. TEICOPLANIN [Concomitant]
     Active Substance: TEICOPLANIN
     Indication: URINARY TRACT INFECTION
     Dosage: 600 MG, ONCE
     Dates: start: 20200722
  65. HUMAN ALBUMIN GRIFOLS [Concomitant]
     Active Substance: ALBUMIN HUMAN
     Indication: HYPOALBUMINAEMIA
     Dosage: 100 %, ONCE
     Dates: start: 20200721, end: 20200721
  66. MIDAZOLAM. [Concomitant]
     Active Substance: MIDAZOLAM
     Dosage: 5 MG, ONCE
     Dates: start: 20200721, end: 20200721
  67. VITAGEN [GLUCOSE] [Concomitant]
     Dosage: 5 %, ONCE
     Dates: start: 20200721, end: 20200721
  68. VITAGEN [GLUCOSE] [Concomitant]
     Dosage: 100 %, ONCE
     Dates: start: 20200721, end: 20200722
  69. VITAGEN [GLUCOSE] [Concomitant]
     Dosage: 100 %, ONCE
     Dates: start: 20200722
  70. VITAGEN [GLUCOSE] [Concomitant]
     Dosage: 100 %, ONCE
     Dates: start: 20200811, end: 20200812
  71. FRESOFOL [Concomitant]
     Dosage: 2 %, QID
     Dates: start: 20200730, end: 20200731
  72. VORICONAZOLE. [Concomitant]
     Active Substance: VORICONAZOLE
     Dosage: 200 MG, ONCE
     Dates: start: 20200728
  73. TRACETON [Concomitant]
     Dosage: UNK UNK, BID
     Dates: start: 20200809
  74. TRACETON [Concomitant]
     Dosage: UNK, PRN
     Dates: start: 20200812
  75. INSULIN REGULAR HM [Concomitant]
     Active Substance: INSULIN NOS
     Indication: TYPE 2 DIABETES MELLITUS
     Dosage: 5 IU, ONCE
     Dates: start: 20200810, end: 20200810
  76. TRAMADOL HCL [Concomitant]
     Active Substance: TRAMADOL HYDROCHLORIDE
     Dosage: 100 MG, PRN
     Dates: start: 20200820, end: 20200820
  77. STIVARGA [Suspect]
     Active Substance: REGORAFENIB
     Indication: HEPATOCELLULAR CARCINOMA
     Dosage: 80 MG, QD
     Dates: start: 20200525, end: 20200619
  78. CEFADROXIL. [Concomitant]
     Active Substance: CEFADROXIL
     Dosage: 1000 MG, BID
     Dates: start: 20191220, end: 20191223
  79. LIPITOR [Concomitant]
     Active Substance: ATORVASTATIN CALCIUM
     Dosage: 20 MG, QD
     Dates: start: 20200410, end: 20200424
  80. CARDOLOL [Concomitant]
     Active Substance: PROPRANOLOL HYDROCHLORIDE
     Dosage: 10 MG, BID
     Dates: start: 20200408, end: 20200410
  81. CARDOLOL [Concomitant]
     Active Substance: PROPRANOLOL HYDROCHLORIDE
     Dosage: 10 MG, BID
     Dates: start: 20200410, end: 20200424
  82. CARDOLOL [Concomitant]
     Active Substance: PROPRANOLOL HYDROCHLORIDE
     Dosage: 80 MG, BID
     Dates: start: 20200602, end: 20200623
  83. CARDOLOL [Concomitant]
     Active Substance: PROPRANOLOL HYDROCHLORIDE
     Dosage: 40 MG, ONCE
     Dates: start: 20200623, end: 20200624
  84. BISACODYL. [Concomitant]
     Active Substance: BISACODYL
     Dosage: 15 MG, ONCE
     Dates: start: 20200622, end: 20200623
  85. MEROPENEM. [Concomitant]
     Active Substance: MEROPENEM
     Indication: PYREXIA
     Dosage: 1000 MG, ONCE
     Dates: start: 20200721, end: 20200721
  86. MEROPENEM. [Concomitant]
     Active Substance: MEROPENEM
     Indication: PYREXIA
     Dosage: 2000 MG, ONCE
     Dates: start: 20200721, end: 20200721
  87. MEROPENEM. [Concomitant]
     Active Substance: MEROPENEM
     Indication: PYREXIA
     Dosage: 500 MG, ONCE
     Dates: start: 20200804, end: 20200805
  88. FENTANYL. [Concomitant]
     Active Substance: FENTANYL
     Dosage: 0.5 MG, Q4HR
     Dates: start: 20200724
  89. POTASSIUM CHLORIDE. [Concomitant]
     Active Substance: POTASSIUM CHLORIDE
     Dosage: 15 %, QD
     Dates: start: 20200727
  90. FRESOFOL [Concomitant]
     Dosage: 2 %, QID
     Dates: start: 20200725, end: 20200725
  91. FRESOFOL [Concomitant]
     Dosage: 2 %, QID
     Dates: start: 20200729
  92. FRESOFOL [Concomitant]
     Dosage: 2 %, Q4HR
     Dates: start: 20200804, end: 20200804
  93. CHLORPHENIRAMINE [CHLORPHENAMINE] [Concomitant]
     Active Substance: CHLORPHENIRAMINE
     Dosage: 5 MG, ONCE
     Dates: start: 20200803, end: 20200804
  94. ALBUMINA GRIFOLS [Concomitant]
     Indication: HYPOALBUMINAEMIA
     Dosage: 25 %, BID
     Dates: start: 20200731, end: 20200803
  95. COMBIVENT [Concomitant]
     Active Substance: ALBUTEROL SULFATE\IPRATROPIUM BROMIDE
     Dosage: 2.5 ML, PRN
     Dates: start: 20200809, end: 20200809
  96. CEFADROXIL. [Concomitant]
     Active Substance: CEFADROXIL
     Dosage: 1000 MG, BID
     Dates: start: 20191220, end: 20191222
  97. ACETAMINOPHEN. [Concomitant]
     Active Substance: ACETAMINOPHEN
     Dosage: 500 MG, PRN
     Dates: start: 20200721
  98. SENNA LEAF [Concomitant]
     Active Substance: SENNA LEAF
     Dosage: 15 MG, QD
     Dates: start: 20191220, end: 20191223
  99. MIDAZOLAM. [Concomitant]
     Active Substance: MIDAZOLAM
     Dosage: 5 MG, ONCE
     Dates: start: 20200721, end: 20200722
  100. FENTANYL. [Concomitant]
     Active Substance: FENTANYL
     Dosage: 0.5 MG, Q4HR
     Dates: start: 20200730, end: 20200804
  101. POTASSIUM CHLORIDE. [Concomitant]
     Active Substance: POTASSIUM CHLORIDE
     Dosage: 15 %, QD
     Dates: start: 20200731, end: 20200803
  102. FRESOFOL [Concomitant]
     Dosage: 2 %, QID
     Dates: start: 20200725, end: 20200726
  103. FRESOFOL [Concomitant]
     Dosage: 2 %, QID
     Dates: start: 20200802, end: 20200803
  104. TIGECYCLINE. [Concomitant]
     Active Substance: TIGECYCLINE
     Dosage: 100 MG, ONCE
     Dates: start: 20200726, end: 20200727
  105. TIGECYCLINE. [Concomitant]
     Active Substance: TIGECYCLINE
     Dosage: 25 MG, BID
     Dates: start: 20200726, end: 20200727
  106. LINAGLIPTIN [Concomitant]
     Active Substance: LINAGLIPTIN
     Indication: TYPE 2 DIABETES MELLITUS
     Dosage: 5 MG, QD
     Dates: start: 20200726
  107. LINAGLIPTIN [Concomitant]
     Active Substance: LINAGLIPTIN
     Indication: TYPE 2 DIABETES MELLITUS
     Dosage: 5 MG, QD
     Dates: start: 20200810, end: 20200811
  108. CHLORPHENIRAMINE [CHLORPHENAMINE] [Concomitant]
     Active Substance: CHLORPHENIRAMINE
     Dosage: 5 MG, ONCE
     Dates: start: 20200805, end: 20200806
  109. ALBUMINA GRIFOLS [Concomitant]
     Indication: HYPOALBUMINAEMIA
     Dosage: 100 %, ONCE
     Dates: start: 20200816, end: 20200817
  110. NOREPINEPHRINE. [Concomitant]
     Active Substance: NOREPINEPHRINE
     Indication: HYPOTENSION
     Dosage: 8 MG, PRN
     Dates: start: 20200806, end: 20200807
  111. MIDORINE [Concomitant]
     Active Substance: MIDODRINE
     Indication: HYPOTENSION
     Dosage: 10 MG, TID
     Dates: start: 20200807, end: 20200817
  112. SMECTA [MONTMORILLONITE] [Concomitant]
     Indication: DIARRHOEA
     Dosage: 3 G, TID
     Dates: start: 20200816, end: 20200817
  113. SMECTA [MONTMORILLONITE] [Concomitant]
     Indication: DIARRHOEA
     Dosage: 3 G, TID
     Dates: start: 20200817
  114. STIVARGA [Suspect]
     Active Substance: REGORAFENIB
     Indication: HEPATOCELLULAR CARCINOMA
     Dosage: UNK
     Dates: start: 20200722, end: 20200822
  115. CEFUROXIME. [Concomitant]
     Active Substance: CEFUROXIME
     Dosage: 1500 MG, TID
     Dates: start: 20191222, end: 20191224
  116. CARDOLOL [Concomitant]
     Active Substance: PROPRANOLOL HYDROCHLORIDE
     Dosage: 20 MG, BID
     Dates: start: 20200421, end: 20200428
  117. INDERAL [Concomitant]
     Active Substance: PROPRANOLOL HYDROCHLORIDE
     Dosage: 60 MG, BID
     Dates: start: 20200512
  118. MEROPENEM. [Concomitant]
     Active Substance: MEROPENEM
     Indication: PYREXIA
     Dosage: 500 MG, ONCE
     Dates: start: 20200808, end: 20200809
  119. LACTULOSE. [Concomitant]
     Active Substance: LACTULOSE
     Dosage: 600 MG, TID
     Dates: start: 20200820, end: 20200822
  120. VITAGEN [GLUCOSE] [Concomitant]
     Dosage: 100 %, PRN
     Dates: start: 20200811, end: 20200812
  121. HEPARIN SOD [Concomitant]
     Active Substance: HEPARIN SODIUM
     Dosage: 1000 UNIT, QD
     Dates: start: 20200723, end: 20200724
  122. POT PHOSPHATE [Concomitant]
     Dosage: 20 ML, ONCE
     Dates: start: 20200724, end: 20200724
  123. FRESOFOL [Concomitant]
     Dosage: 2 %, QID
     Dates: start: 20200727
  124. FRESOFOL [Concomitant]
     Dosage: 2 %, QID
     Dates: start: 20200801, end: 20200802
  125. COLIMYCIN [COLISTIN SULFATE] [Concomitant]
     Dosage: 300.6 MG, ONCE
     Dates: start: 20200726, end: 20200727
  126. CIPROFLOXACIN. [Concomitant]
     Active Substance: CIPROFLOXACIN
     Dosage: 400 MG, BID
     Dates: start: 20200728
  127. NOREPINEPHRINE. [Concomitant]
     Active Substance: NOREPINEPHRINE
     Indication: HYPOTENSION
     Dosage: 8 MG, BID
     Dates: start: 20200809, end: 20200812
  128. KALIMATE [Concomitant]
     Active Substance: CALCIUM POLYSTYRENE SULFONATE
     Indication: HYPERKALAEMIA
     Dosage: 5 G, TID
     Dates: start: 20200813, end: 20200816

REACTIONS (12)
  - Upper gastrointestinal haemorrhage [Recovering/Resolving]
  - Duodenal ulcer haemorrhage [Recovered/Resolved]
  - Septic shock [Not Recovered/Not Resolved]
  - Oesophageal varices haemorrhage [Recovered/Resolved]
  - Upper gastrointestinal haemorrhage [Recovered/Resolved]
  - Melaena [Recovered/Resolved]
  - Pneumonia [Not Recovered/Not Resolved]
  - Acute kidney injury [Recovering/Resolving]
  - Malignant neoplasm of renal pelvis [Not Recovered/Not Resolved]
  - Melaena [Recovered/Resolved]
  - Urinary tract infection [Not Recovered/Not Resolved]
  - Melaena [Recovered/Resolved]

NARRATIVE: CASE EVENT DATE: 20191219
